FAERS Safety Report 25973011 (Version 1)
Quarter: 2025Q4

REPORT INFORMATION
  Report Type: Spontaneous
  Country: US (occurrence: US)
  Receive Date: 20251029
  Receipt Date: 20251029
  Transmission Date: 20260118
  Serious: No
  Sender: LABORATOIRES SERB
  Company Number: US-SERB S.A.S.-2187457

PATIENT
  Age: 67 Year
  Sex: Male

DRUGS (1)
  1. CROFAB [Suspect]
     Active Substance: AGKISTRODON PISCIVORUS IMMUNE FAB ANTIVENIN (OVINE)\CROTALUS ADAMANTEUS IMMUNE FAB ANTIVENIN (OVINE)
     Indication: Snake bite

REACTIONS (2)
  - Ecchymosis [Recovered/Resolved]
  - Blood fibrinogen decreased [Recovered/Resolved]
